FAERS Safety Report 7010918-1 (Version None)
Quarter: 2010Q3

REPORT INFORMATION
  Report Type: 
  Country: None (occurrence: None)
  Receive Date: 20100923
  Receipt Date: 20100923
  Transmission Date: 20110219
  Serious: Yes (Other)
  Sender: FDA-Public Use
  Company Number: None

PATIENT
  Sex: Female
  Weight: 65.9 kg

DRUGS (1)
  1. JOLIVETTE WATSON PHARMACEUTICALS [Suspect]
     Indication: ORAL CONTRACEPTION
     Dosage: 1 PILL SID
     Dates: start: 20100708, end: 20100819

REACTIONS (1)
  - SUPPRESSED LACTATION [None]
